FAERS Safety Report 19015223 (Version 1)
Quarter: 2021Q1

REPORT INFORMATION
  Report Type: Spontaneous
  Country: TW (occurrence: TW)
  Receive Date: 20210317
  Receipt Date: 20210317
  Transmission Date: 20210420
  Serious: Yes (Life-Threatening, Other)
  Sender: FDA-Public Use
  Company Number: TW-ACCORD-218814

PATIENT
  Age: 63 Year
  Sex: Male

DRUGS (2)
  1. ACETYLSALICYLIC ACID [Suspect]
     Active Substance: ASPIRIN
     Indication: CORONARY ARTERY DISEASE
  2. ACETAZOLAMIDE. [Suspect]
     Active Substance: ACETAZOLAMIDE
     Indication: GLAUCOMA

REACTIONS (3)
  - Leukocytosis [Recovered/Resolved]
  - Acidosis hyperchloraemic [Recovered/Resolved]
  - Hyperammonaemia [Recovered/Resolved]
